FAERS Safety Report 22376745 (Version 5)
Quarter: 2024Q1

REPORT INFORMATION
  Report Type: Report from Study
  Country: PT (occurrence: PT)
  Receive Date: 20230528
  Receipt Date: 20240109
  Transmission Date: 20240409
  Serious: Yes (Other)
  Sender: FDA-Public Use
  Company Number: PT-ABBVIE-4737549

PATIENT
  Age: 74 Year
  Sex: Female

DRUGS (10)
  1. CARBIDOPA\LEVODOPA [Suspect]
     Active Substance: CARBIDOPA\LEVODOPA
     Indication: Parkinson^s disease
     Dosage: 20 MG PLUS 5 MG?FREQUENCY TEXT: MOR:10.2CC; MAIN:2.6CC/H; EXTR:1CC
     Route: 050
     Dates: start: 2022, end: 20230816
  2. CARBIDOPA\LEVODOPA [Suspect]
     Active Substance: CARBIDOPA\LEVODOPA
     Dosage: 20 MG PLUS 5 MG, ?FREQUENCY TEXT: MOR:4ML; MAIN:1,7ML/H; EXTR:1ML?LAST ADMIN DATE: 2021
     Route: 050
     Dates: start: 20210630
  3. CARBIDOPA\LEVODOPA [Suspect]
     Active Substance: CARBIDOPA\LEVODOPA
     Dosage: 20 MG + 5 MG?FREQUENCY TEXT: MORN:10CC;MAIN:2.4CC/H;EXTRA:1CC
     Route: 050
     Dates: start: 20230816, end: 20240102
  4. CARBIDOPA\LEVODOPA [Suspect]
     Active Substance: CARBIDOPA\LEVODOPA
     Dosage: 20 MG + 5 MG?FREQUENCY TEXT: MORN:9.5CC;MAIN:2.4CC/H;EXTRA:1CC
     Route: 050
     Dates: start: 20240102
  5. CLONAZEPAM [Suspect]
     Active Substance: CLONAZEPAM
     Indication: Product used for unknown indication
     Dosage: 1 TABLET?LAST ADMIN DATE: 2023 MAY?FORM STRENGTH: 0.5 MILLIGRAM FREQUENCY TEXT: AT BEDTIME
     Route: 065
     Dates: start: 20230503
  6. REQUIP [Concomitant]
     Active Substance: ROPINIROLE HYDROCHLORIDE
     Indication: Restless legs syndrome
     Dosage: 4 MILLIGRAM?LAST ADMIN DATE MAY 2023?FREQUENCY TEXT: AT BEDTIME
     Dates: start: 20230503
  7. REQUIP [Concomitant]
     Active Substance: ROPINIROLE HYDROCHLORIDE
     Indication: Restless legs syndrome
     Dosage: 8 MILLIGRAM??FREQUENCY TEXT: AT BEDTIME
     Dates: start: 202305
  8. REQUIP [Concomitant]
     Active Substance: ROPINIROLE HYDROCHLORIDE
     Indication: Restless legs syndrome
     Dosage: 1 TABLET
     Dates: start: 20230420
  9. REQUIP [Concomitant]
     Active Substance: ROPINIROLE HYDROCHLORIDE
     Indication: Restless legs syndrome
     Dosage: 16 TABLET?FREQUENCY TEXT: 8 IN THE MORNING + 8 AT NIGHT? START DATE TEXT: BEFORE DUODOPA
  10. QUETIAPINE [Concomitant]
     Active Substance: QUETIAPINE
     Indication: Product used for unknown indication
     Dosage: START DATE TEXT: BEFORE DUODOPA

REACTIONS (9)
  - Brain operation [Recovered/Resolved]
  - Parkinsonism [Recovering/Resolving]
  - Neck pain [Recovering/Resolving]
  - Dyskinesia [Recovering/Resolving]
  - Insomnia [Recovered/Resolved]
  - Restless legs syndrome [Recovering/Resolving]
  - Dyskinesia [Recovering/Resolving]
  - Somnolence [Recovered/Resolved]
  - Fall [Recovered/Resolved]

NARRATIVE: CASE EVENT DATE: 20230401
